FAERS Safety Report 14065995 (Version 1)
Quarter: 2017Q4

REPORT INFORMATION
  Report Type: Spontaneous
  Country: AU (occurrence: AU)
  Receive Date: 20171009
  Receipt Date: 20171009
  Transmission Date: 20180321
  Serious: Yes (Other)
  Sender: FDA-Public Use
  Company Number: AU-BAUSCH-BL-2017-028534

PATIENT
  Age: 82 Year
  Sex: Female

DRUGS (1)
  1. ALDARA [Suspect]
     Active Substance: IMIQUIMOD
     Indication: SKIN LESION
     Route: 065
     Dates: start: 20170402, end: 20170419

REACTIONS (1)
  - Basedow^s disease [Recovering/Resolving]

NARRATIVE: CASE EVENT DATE: 201704
